FAERS Safety Report 23708543 (Version 2)
Quarter: 2024Q2

REPORT INFORMATION
  Report Type: Spontaneous
  Country: US (occurrence: US)
  Receive Date: 20240404
  Receipt Date: 20240604
  Transmission Date: 20240716
  Serious: Yes (Other)
  Sender: FDA-Public Use
  Company Number: US-PFIZER INC-202400076937

PATIENT
  Age: 13 Year
  Sex: Male

DRUGS (1)
  1. OXBRYTA [Suspect]
     Active Substance: VOXELOTOR
     Dosage: 1500 MG (3 TABLETS OF 500 MG), 1X/DAY
     Route: 048
     Dates: start: 202311

REACTIONS (4)
  - Sickle cell anaemia with crisis [Recovering/Resolving]
  - Influenza like illness [Unknown]
  - Nausea [Unknown]
  - Pain [Unknown]

NARRATIVE: CASE EVENT DATE: 20240501
